FAERS Safety Report 4437326-1 (Version None)
Quarter: 2004Q3

REPORT INFORMATION
  Report Type: 
  Country: None (occurrence: None)
  Receive Date: 20040726
  Receipt Date: 20040331
  Transmission Date: 20050211
  Serious: No
  Sender: FDA-Public Use
  Company Number: USA040363552

PATIENT
  Age: 82 Year
  Sex: Female
  Weight: 57 kg

DRUGS (3)
  1. FORTEO [Suspect]
     Indication: OSTEOPOROSIS
     Dosage: 20 UG/L DAY
     Dates: start: 20040326
  2. NEXIUM [Concomitant]
  3. HIGH POTENCY VITAMINS [Concomitant]

REACTIONS (5)
  - DIZZINESS [None]
  - FEELING COLD [None]
  - HEADACHE [None]
  - NAUSEA [None]
  - SKIN LESION [None]
